FAERS Safety Report 9269434 (Version 1)
Quarter: 2013Q2

REPORT INFORMATION
  Report Type: Spontaneous
  Country: US (occurrence: US)
  Receive Date: 20130503
  Receipt Date: 20130503
  Transmission Date: 20140414
  Serious: No
  Sender: FDA-Public Use
  Company Number: US-BAYER-2013-053277

PATIENT
  Age: 61 Year
  Sex: Female
  Weight: 81 kg

DRUGS (12)
  1. BETASERON [Suspect]
     Dosage: 0.25 ML, QOD
  2. ADVIL [Concomitant]
     Dosage: 200 MG, UNK
  3. BYETTA [Concomitant]
     Dosage: 5 MCG/ML, UNK
  4. ASPIRIN BUFFERED [Concomitant]
     Dosage: 324 MG, UNK
  5. ZINC [Concomitant]
     Dosage: 30 MG, UNK
  6. ENALAPRIL [Concomitant]
     Dosage: 2.5 MG, UNK
  7. ATORVASTATIN [Concomitant]
     Dosage: 10 MG, UNK
  8. OMEPRAZOLE [Concomitant]
     Dosage: 10 MG, UNK
  9. ZYRTEC [Concomitant]
     Dosage: 10 MG, UNK
  10. VITAMIN D [Concomitant]
     Dosage: 400 U, UNK
  11. VITAMIN C [Concomitant]
     Dosage: 500 MG, UNK
  12. CALCIUM W/VITAMIN D NOS [Concomitant]

REACTIONS (3)
  - Muscle spasms [Unknown]
  - Injection site pain [Unknown]
  - Influenza like illness [Unknown]
